FAERS Safety Report 16411590 (Version 1)
Quarter: 2019Q2

REPORT INFORMATION
  Report Type: Report from Study
  Country: US (occurrence: US)
  Receive Date: 20190610
  Receipt Date: 20190610
  Transmission Date: 20190711
  Serious: Yes (Hospitalization)
  Sender: FDA-Public Use
  Company Number: US-PFIZER INC-2019244787

PATIENT
  Age: 69 Year
  Sex: Male

DRUGS (2)
  1. PHOTOFRIN [Suspect]
     Active Substance: PORFIMER SODIUM
     Dosage: 2 MG/KG, UNK
     Route: 042
  2. GEMCITABINE HYDROCHLORIDE. [Suspect]
     Active Substance: GEMCITABINE HYDROCHLORIDE
     Indication: PANCREATIC CARCINOMA
     Dosage: 1000 MG/M2, CYCLIC (OVER 30 MINUTES,DAY 1, DAY8, AND DAY 15 OF 28 DAY TREATMENT CYCLE), 5 CYCLES
     Route: 042

REACTIONS (2)
  - Ascites [Recovered/Resolved]
  - Nausea [Recovered/Resolved]
